FAERS Safety Report 23314505 (Version 1)
Quarter: 2023Q4

REPORT INFORMATION
  Report Type: Spontaneous
  Country: MY (occurrence: MY)
  Receive Date: 20231219
  Receipt Date: 20231219
  Transmission Date: 20240110
  Serious: Yes (Other)
  Sender: FDA-Public Use
  Company Number: MY-PFIZER INC-202300445718

PATIENT
  Age: 41 Year
  Sex: Male

DRUGS (1)
  1. CEFOBID [Suspect]
     Active Substance: CEFOPERAZONE
     Indication: Abscess
     Dosage: 1 G, 1X/DAY
     Route: 042

REACTIONS (6)
  - Oxygen saturation decreased [Recovering/Resolving]
  - Hypotension [Recovering/Resolving]
  - Vomiting [Recovering/Resolving]
  - Dyspnoea [Recovering/Resolving]
  - Rash pruritic [Recovering/Resolving]
  - Off label use [Unknown]
